FAERS Safety Report 9493171 (Version 2)
Quarter: 2013Q4

REPORT INFORMATION
  Report Type: Report from Study
  Country: DE (occurrence: DE)
  Receive Date: 20130902
  Receipt Date: 20131015
  Transmission Date: 20140711
  Serious: Yes (Other)
  Sender: FDA-Public Use
  Company Number: DE-BRISTOL-MYERS SQUIBB COMPANY-19238724

PATIENT
  Age: 61 Year
  Sex: Male

DRUGS (1)
  1. CETUXIMAB [Suspect]
     Indication: SQUAMOUS CELL CARCINOMA OF HEAD AND NECK
     Dosage: LOADING DOSE OF 400MG/M2, ?FOLLOWED BY WEEKLY INFUSIONS OF 250MG/M2?RECENT DOSE ON 05DEC12
     Route: 042
     Dates: start: 20121008

REACTIONS (1)
  - Malnutrition [Recovered/Resolved]
